FAERS Safety Report 20964978 (Version 1)
Quarter: 2022Q2

REPORT INFORMATION
  Report Type: Spontaneous
  Country: None (occurrence: US)
  Receive Date: 20220616
  Receipt Date: 20220616
  Transmission Date: 20220721
  Serious: Yes (Hospitalization, Other)
  Sender: FDA-Public Use
  Company Number: US-Oxford Pharmaceuticals, LLC-2129951

PATIENT
  Age: 59 Year
  Sex: Male

DRUGS (2)
  1. PAROXETINE HYDROCHLORIDE [Suspect]
     Active Substance: PAROXETINE HYDROCHLORIDE
     Indication: Bipolar I disorder
  2. PRAZOSIN [Concomitant]
     Active Substance: PRAZOSIN

REACTIONS (4)
  - Bipolar disorder [Unknown]
  - Post-traumatic stress disorder [Unknown]
  - Condition aggravated [Unknown]
  - Suicide attempt [Recovered/Resolved]
